FAERS Safety Report 9172604 (Version 1)
Quarter: 2012Q4

REPORT INFORMATION
  Report Type: 
  Country: US (occurrence: US)
  Receive Date: 20120911
  Receipt Date: 20120911
  Transmission Date: 20130627
  Serious: No
  Sender: FDA-Public Use
  Company Number: US-ASTRAZENECA-2012SE60618

PATIENT
  Age: 81 Year
  Sex: Female
  Weight: 54.4 kg

DRUGS (1)
  1. ANASTROZOLE [Suspect]
     Indication: BREAST CANCER
     Route: 048

REACTIONS (2)
  - Body height decreased [Unknown]
  - Rash pruritic [Not Recovered/Not Resolved]
